FAERS Safety Report 8916153 (Version 1)
Quarter: 2012Q4

REPORT INFORMATION
  Report Type: 
  Country: US (occurrence: US)
  Receive Date: 20121120
  Receipt Date: 20121120
  Transmission Date: 20130627
  Serious: Yes (Other)
  Sender: FDA-Public Use
  Company Number: US-ELI_LILLY_AND_COMPANY-US201211003009

PATIENT
  Age: 66 Year
  Sex: Female

DRUGS (6)
  1. CYMBALTA [Suspect]
     Indication: MAJOR DEPRESSION
     Dosage: 30 mg, UNK
     Dates: start: 201207
  2. CYMBALTA [Suspect]
     Dosage: 60 mg, qd
  3. CYMBALTA [Suspect]
     Dosage: 60 mg, bid
  4. CYMBALTA [Suspect]
     Dosage: 60 mg, qd
  5. CYMBALTA [Suspect]
     Dosage: 60 mg, bid
     Dates: start: 201210
  6. CYMBALTA [Suspect]
     Dosage: 30 mg, UNK

REACTIONS (1)
  - Rash pruritic [Recovered/Resolved]
